FAERS Safety Report 12845217 (Version 1)
Quarter: 2016Q4

REPORT INFORMATION
  Report Type: Spontaneous
  Country: NZ (occurrence: NZ)
  Receive Date: 20161013
  Receipt Date: 20161013
  Transmission Date: 20170207
  Serious: Yes (Death, Other)
  Sender: FDA-Public Use
  Company Number: NZ-ASTRAZENECA-2016SF06081

PATIENT
  Age: 72 Year
  Sex: Female

DRUGS (4)
  1. CLEXANE [Concomitant]
     Active Substance: ENOXAPARIN SODIUM
  2. TICAGRELOR [Suspect]
     Active Substance: TICAGRELOR
     Route: 048
  3. GTN [Concomitant]
     Active Substance: NITROGLYCERIN
  4. ASPIRIN. [Concomitant]
     Active Substance: ASPIRIN

REACTIONS (7)
  - Multiple organ dysfunction syndrome [Fatal]
  - Hypotension [Unknown]
  - Myocardial infarction [Fatal]
  - Cardiogenic shock [Fatal]
  - Vascular stent thrombosis [Fatal]
  - Retroperitoneal haematoma [Unknown]
  - Post procedural haemorrhage [Unknown]
